FAERS Safety Report 9407346 (Version 1)
Quarter: 2013Q3

REPORT INFORMATION
  Report Type: Spontaneous
  Country: US (occurrence: US)
  Receive Date: 20130718
  Receipt Date: 20130718
  Transmission Date: 20140515
  Serious: No
  Sender: FDA-Public Use
  Company Number: US-BAYER-2013-087210

PATIENT
  Sex: Female

DRUGS (3)
  1. ALEVE GELCAPS [Suspect]
     Indication: INFLAMMATION
     Dosage: 2 DF, PRN
     Route: 048
  2. BENICAR [Concomitant]
  3. DIURETICS [Concomitant]
     Dosage: UNK
     Dates: start: 2012

REACTIONS (1)
  - Off label use [None]
